FAERS Safety Report 8405741-7 (Version None)
Quarter: 2012Q2

REPORT INFORMATION
  Report Type: 
  Country: None (occurrence: None)
  Receive Date: 20120530
  Receipt Date: 20120530
  Transmission Date: 20120825
  Serious: No
  Sender: FDA-Public Use
  Company Number: None

PATIENT
  Sex: Female
  Weight: 70.5 kg

DRUGS (1)
  1. SIMPONI [Suspect]
     Indication: RHEUMATOID ARTHRITIS
     Dosage: 50MG QMTH SQ
     Route: 058
     Dates: start: 20120401

REACTIONS (8)
  - ABDOMINAL PAIN [None]
  - CONSTIPATION [None]
  - FOOT OPERATION [None]
  - PAIN [None]
  - DECREASED APPETITE [None]
  - MALAISE [None]
  - OROPHARYNGEAL PAIN [None]
  - EAR PAIN [None]
